FAERS Safety Report 13863492 (Version 1)
Quarter: 2017Q3

REPORT INFORMATION
  Report Type: Spontaneous
  Country: US (occurrence: US)
  Receive Date: 20170814
  Receipt Date: 20170814
  Transmission Date: 20171127
  Serious: No
  Sender: FDA-Public Use
  Company Number: US-PFIZER INC-2017347211

PATIENT
  Sex: Female

DRUGS (1)
  1. METHOTREXATE SODIUM. [Suspect]
     Active Substance: METHOTREXATE SODIUM
     Dosage: 6 DF, WEEKLY (6 TAB ONCE A WEEK)

REACTIONS (4)
  - Alopecia [Unknown]
  - Pain [Unknown]
  - Drug ineffective [Unknown]
  - Gastrointestinal disorder [Unknown]
